FAERS Safety Report 7495688-5 (Version None)
Quarter: 2011Q2

REPORT INFORMATION
  Report Type: 
  Country: None (occurrence: None)
  Receive Date: 20110523
  Receipt Date: 20110512
  Transmission Date: 20111010
  Serious: No
  Sender: FDA-Public Use
  Company Number: US-B.I. PHARMACEUTICALS,INC./RIDGEFIELD-2011-BP-12961BP

PATIENT
  Sex: Male

DRUGS (3)
  1. SYMBICORT [Concomitant]
     Route: 055
     Dates: start: 20110301, end: 20110401
  2. SPIRIVA [Suspect]
     Dosage: 18 MCG
     Route: 055
     Dates: start: 20110401
  3. SPIRIVA [Suspect]
     Dosage: 18 MCG
     Route: 055
     Dates: start: 20110301, end: 20110301

REACTIONS (2)
  - DYSURIA [None]
  - PROSTATOMEGALY [None]
